FAERS Safety Report 25157756 (Version 2)
Quarter: 2025Q2

REPORT INFORMATION
  Report Type: Report from Study
  Country: US (occurrence: US)
  Receive Date: 20250403
  Receipt Date: 20250408
  Transmission Date: 20250717
  Serious: Yes (Other)
  Sender: NOVARTIS
  Company Number: US-002147023-NVSC2025US054641

PATIENT
  Sex: Female

DRUGS (2)
  1. LEQVIO [Suspect]
     Active Substance: INCLISIRAN SODIUM
     Indication: Product used for unknown indication
     Route: 058
  2. ASPIRIN [Suspect]
     Active Substance: ASPIRIN
     Indication: Product used for unknown indication
     Route: 065

REACTIONS (8)
  - Myocardial infarction [Unknown]
  - Chest pain [Unknown]
  - Dyspnoea [Unknown]
  - Stress [Unknown]
  - Abdominal pain upper [Unknown]
  - Anxiety [Unknown]
  - Nervousness [Unknown]
  - Blood cholesterol increased [Recovered/Resolved]
